FAERS Safety Report 15682850 (Version 1)
Quarter: 2018Q4

REPORT INFORMATION
  Report Type: Spontaneous
  Country: GB (occurrence: GB)
  Receive Date: 20181203
  Receipt Date: 20181203
  Transmission Date: 20190205
  Serious: Yes (Other)
  Sender: FDA-Public Use
  Company Number: GB-HETERO CORPORATE-HET2018GB01481

PATIENT
  Sex: Male

DRUGS (2)
  1. CLOPIXOL                           /00876702/ [Suspect]
     Active Substance: ZUCLOPENTHIXOL ACETATE
     Indication: SCHIZOPHRENIA
     Dosage: 600 MG
     Route: 065
  2. ARIPIPRAZOLE. [Suspect]
     Active Substance: ARIPIPRAZOLE
     Indication: PRODUCT USED FOR UNKNOWN INDICATION
     Dosage: UNK
     Route: 065

REACTIONS (14)
  - Arthralgia [Unknown]
  - Blood creatinine increased [Unknown]
  - Malaise [Unknown]
  - Heart rate increased [Unknown]
  - Vomiting [Unknown]
  - C-reactive protein abnormal [Unknown]
  - Alanine aminotransferase abnormal [Unknown]
  - Diarrhoea [Unknown]
  - Myalgia [Unknown]
  - Asthenia [Unknown]
  - White blood cell count abnormal [Unknown]
  - Body temperature increased [Unknown]
  - Blood creatine phosphokinase increased [Unknown]
  - Chills [Unknown]
